FAERS Safety Report 14639215 (Version 1)
Quarter: 2018Q1

REPORT INFORMATION
  Report Type: Spontaneous
  Country: US (occurrence: US)
  Receive Date: 20180315
  Receipt Date: 20180315
  Transmission Date: 20180509
  Serious: No
  Sender: FDA-Public Use
  Company Number: US-JNJFOC-20180121062

PATIENT
  Age: 32 Year
  Sex: Female
  Weight: 61.69 kg

DRUGS (9)
  1. IMURAN [Concomitant]
     Active Substance: AZATHIOPRINE
     Indication: ANTIBODY TEST POSITIVE
     Route: 065
  2. STELARA [Suspect]
     Active Substance: USTEKINUMAB
     Indication: CROHN^S DISEASE
     Dosage: INTRAVENOUS
     Dates: start: 201705
  3. ERGOCALCIFEROL. [Concomitant]
     Active Substance: ERGOCALCIFEROL
     Route: 048
  4. STELARA [Suspect]
     Active Substance: USTEKINUMAB
     Indication: CROHN^S DISEASE
     Dosage: SUBCUTANEOUS
     Dates: start: 2017
  5. OMEPRAZOLE. [Concomitant]
     Active Substance: OMEPRAZOLE
     Route: 048
  6. FERREX [Concomitant]
     Active Substance: FERRIC POLYSACCHARIDE COMPLEX
     Route: 048
  7. TYLENOL [Concomitant]
     Active Substance: ACETAMINOPHEN
     Route: 048
  8. AZATHIOPRINE. [Concomitant]
     Active Substance: AZATHIOPRINE
     Route: 048
  9. ZYRTEC [Concomitant]
     Active Substance: CETIRIZINE HYDROCHLORIDE
     Route: 048

REACTIONS (3)
  - Malaise [Unknown]
  - Tooth injury [Unknown]
  - C-reactive protein increased [Unknown]

NARRATIVE: CASE EVENT DATE: 2017
